FAERS Safety Report 9958362 (Version 2)
Quarter: 2014Q1

REPORT INFORMATION
  Report Type: Report from Study
  Country: PE (occurrence: PE)
  Receive Date: 20140305
  Receipt Date: 20140305
  Transmission Date: 20141002
  Serious: Yes (Other)
  Sender: FDA-Public Use
  Company Number: PE-ROCHE-1317704

PATIENT
  Age: 64 Year
  Sex: Female

DRUGS (2)
  1. PEGASYS [Suspect]
     Indication: HEPATITIS C
     Route: 058
     Dates: start: 20130322
  2. RIBAVIRIN [Concomitant]
     Indication: HEPATITIS C
     Route: 048
     Dates: start: 20130322

REACTIONS (6)
  - Gait disturbance [Recovering/Resolving]
  - Rash [Recovered/Resolved]
  - Oropharyngeal pain [Recovering/Resolving]
  - Pruritus [Recovered/Resolved]
  - Headache [Recovering/Resolving]
  - Muscle spasms [Recovering/Resolving]
